FAERS Safety Report 18088512 (Version 2)
Quarter: 2020Q3

REPORT INFORMATION
  Report Type: Report from Study
  Country: US (occurrence: US)
  Receive Date: 20200729
  Receipt Date: 20200930
  Transmission Date: 20201103
  Serious: Yes (Other)
  Sender: FDA-Public Use
  Company Number: US-BIOGEN-2020BI00901964

PATIENT
  Sex: Male

DRUGS (1)
  1. TYSABRI [Suspect]
     Active Substance: NATALIZUMAB
     Indication: MULTIPLE SCLEROSIS
     Route: 042
     Dates: start: 20190710

REACTIONS (6)
  - Pneumothorax [Unknown]
  - Pain [Unknown]
  - Splenic abscess [Unknown]
  - Oesophageal perforation [Unknown]
  - Loss of control of legs [Unknown]
  - Gastrointestinal procedural complication [Unknown]
